FAERS Safety Report 19595413 (Version 6)
Quarter: 2021Q4

REPORT INFORMATION
  Report Type: Spontaneous
  Country: US (occurrence: US)
  Receive Date: 20210722
  Receipt Date: 20211010
  Transmission Date: 20220303
  Serious: Yes (Life-Threatening)
  Sender: FDA-Public Use
  Company Number: US-ROCHE-2874554

PATIENT
  Age: 68 Year
  Sex: Male

DRUGS (3)
  1. ACTIVASE [Suspect]
     Active Substance: ALTEPLASE
     Indication: Facial paralysis
     Dosage: 0.9 MG/KG/ML
     Route: 065
     Dates: start: 20210719
  2. ACTIVASE [Suspect]
     Active Substance: ALTEPLASE
     Indication: Dysarthria
     Dosage: 0.81 MG/KG, ONGOING-NO
     Route: 065
     Dates: start: 20210719
  3. ACTIVASE [Suspect]
     Active Substance: ALTEPLASE
     Indication: Ischaemic stroke

REACTIONS (5)
  - Angioedema [Not Recovered/Not Resolved]
  - Swollen tongue [Not Recovered/Not Resolved]
  - Dyspnoea [Not Recovered/Not Resolved]
  - Hypotension [Not Recovered/Not Resolved]
  - Product quality issue [Unknown]

NARRATIVE: CASE EVENT DATE: 20210719
